FAERS Safety Report 8098512-5 (Version None)
Quarter: 2012Q1

REPORT INFORMATION
  Report Type: 
  Country: None (occurrence: None)
  Receive Date: 20120129
  Receipt Date: 20110913
  Transmission Date: 20120608
  Serious: No
  Sender: FDA-Public Use
  Company Number: US-ABBOTT-11P-163-0854759-00

PATIENT
  Age: 30 Year
  Sex: Male

DRUGS (8)
  1. SINGULAIR [Concomitant]
     Indication: ASTHMA
     Dosage: IN THE EVENING
     Route: 048
     Dates: start: 20080101
  2. ADVAIR DISKUS 100/50 [Concomitant]
     Indication: PRODUCT USED FOR UNKNOWN INDICATION
     Dosage: 100/50MG
     Dates: start: 20030101
  3. HUMIRA [Suspect]
     Indication: PSORIASIS
     Dates: start: 20090401
  4. PROAIR HFA [Concomitant]
     Indication: PRODUCT USED FOR UNKNOWN INDICATION
     Dosage: 200 METER
     Dates: start: 20080101
  5. TACLONEX [Concomitant]
     Indication: PRODUCT USED FOR UNKNOWN INDICATION
  6. SINGULAIR [Concomitant]
     Indication: HYPERSENSITIVITY
  7. CUTIVATE [Concomitant]
     Indication: PRODUCT USED FOR UNKNOWN INDICATION
     Dates: start: 20080101
  8. RHINOCORT [Concomitant]
     Indication: PRODUCT USED FOR UNKNOWN INDICATION
     Dosage: 2 SPRAYS IN EACH NOSTRIL DAILY
     Dates: start: 20060101

REACTIONS (2)
  - RASH [None]
  - STRESS [None]
